FAERS Safety Report 12399904 (Version 4)
Quarter: 2016Q3

REPORT INFORMATION
  Report Type: Report from Study
  Country: US (occurrence: US)
  Receive Date: 20160524
  Receipt Date: 20160706
  Transmission Date: 20161109
  Serious: Yes (Death, Life-Threatening, Hospitalization, Disabling, Other)
  Sender: FDA-Public Use
  Company Number: US-GILEAD-2016-0213860

PATIENT
  Age: 55 Year
  Sex: Male

DRUGS (15)
  1. METOPROLOL. [Concomitant]
     Active Substance: METOPROLOL
  2. SIMETHICONE (DIMETHICONE) [Concomitant]
     Active Substance: DIMETHICONE
  3. ZINC [Concomitant]
     Active Substance: ZINC\ZINC CHLORIDE
  4. METOPROLOL SUCCINATE. [Concomitant]
     Active Substance: METOPROLOL SUCCINATE
  5. REMODULIN [Suspect]
     Active Substance: TREPROSTINIL
     Indication: PULMONARY ARTERIAL HYPERTENSION
     Dosage: 14 NG, Q1MINUTE
     Dates: start: 20160413, end: 20160608
  6. SILDENAFIL. [Suspect]
     Active Substance: SILDENAFIL
     Indication: PRODUCT USED FOR UNKNOWN INDICATION
     Dosage: UNK
     Route: 065
  7. AMILORIDE [Concomitant]
     Active Substance: AMILORIDE
  8. URSODIOL. [Concomitant]
     Active Substance: URSODIOL
  9. AMBRISENTAN [Suspect]
     Active Substance: AMBRISENTAN
     Indication: PULMONARY ARTERIAL HYPERTENSION
     Dosage: 10 MG, QD
     Route: 065
     Dates: start: 20160328, end: 20160608
  10. ATORVASTATIN [Concomitant]
     Active Substance: ATORVASTATIN
  11. HYDROXYZINE [Concomitant]
     Active Substance: HYDROXYZINE\HYDROXYZINE HYDROCHLORIDE
  12. LACTULOSE. [Concomitant]
     Active Substance: LACTULOSE
  13. FOLIC ACID. [Concomitant]
     Active Substance: FOLIC ACID
  14. RIFAXIMIN [Concomitant]
     Active Substance: RIFAXIMIN
  15. FUROSEMIDE. [Concomitant]
     Active Substance: FUROSEMIDE

REACTIONS (3)
  - Renal failure [Fatal]
  - Sepsis [Fatal]
  - Liver transplant [Unknown]

NARRATIVE: CASE EVENT DATE: 20160516
